FAERS Safety Report 23908359 (Version 2)
Quarter: 2025Q2

REPORT INFORMATION
  Report Type: Spontaneous
  Country: IE (occurrence: IE)
  Receive Date: 20240528
  Receipt Date: 20250407
  Transmission Date: 20250717
  Serious: Yes (Congenital Anomaly)
  Sender: TEVA
  Company Number: IE-TEVA-VS-3201249

PATIENT
  Sex: Male

DRUGS (1)
  1. COPAXONE [Suspect]
     Active Substance: GLATIRAMER ACETATE
     Indication: Product used for unknown indication
     Route: 064
     Dates: start: 20200406

REACTIONS (2)
  - Ventricular septal defect [Unknown]
  - Foetal exposure during pregnancy [Unknown]

NARRATIVE: CASE EVENT DATE: 20231209
